FAERS Safety Report 12912526 (Version 2)
Quarter: 2018Q1

REPORT INFORMATION
  Report Type: Spontaneous
  Country: GB (occurrence: GB)
  Receive Date: 20161104
  Receipt Date: 20180327
  Transmission Date: 20180508
  Serious: Yes (Other)
  Sender: FDA-Public Use
  Company Number: GB-UCBSA-2016042209

PATIENT
  Sex: Female

DRUGS (2)
  1. KEPPRA [Suspect]
     Active Substance: LEVETIRACETAM
     Indication: EPILEPSY
     Dosage: 250 MG, 2X/DAY (BID)
  2. TEGRETOL [Concomitant]
     Active Substance: CARBAMAZEPINE
     Indication: PRODUCT USED FOR UNKNOWN INDICATION
     Dosage: 400 MG, 2X/DAY (BID)

REACTIONS (12)
  - Headache [Unknown]
  - Myalgia [Unknown]
  - Seizure [Unknown]
  - Suicidal ideation [Unknown]
  - Abortion induced [Unknown]
  - Brain neoplasm [Unknown]
  - Panic attack [Unknown]
  - Urinary tract infection [Unknown]
  - Partial seizures [Unknown]
  - Amnesia [Unknown]
  - Pregnancy [Unknown]
  - Abnormal behaviour [Unknown]

NARRATIVE: CASE EVENT DATE: 2007
